FAERS Safety Report 23352198 (Version 1)
Quarter: 2023Q4

REPORT INFORMATION
  Report Type: Report from Study
  Country: US (occurrence: US)
  Receive Date: 20231229
  Receipt Date: 20231229
  Transmission Date: 20240110
  Serious: Yes (Other)
  Sender: FDA-Public Use
  Company Number: US-ABBVIE-22K-163-4509152-00

PATIENT
  Sex: Female

DRUGS (3)
  1. HUMIRA [Suspect]
     Active Substance: ADALIMUMAB
     Indication: Psoriasis
     Dosage: CITRATE FREE
     Route: 058
  2. HUMIRA [Suspect]
     Active Substance: ADALIMUMAB
     Indication: Colitis ulcerative
  3. BENADRYL [Concomitant]
     Active Substance: DIPHENHYDRAMINE HYDROCHLORIDE
     Indication: Product used for unknown indication

REACTIONS (24)
  - Pleurisy [Not Recovered/Not Resolved]
  - General physical health deterioration [Not Recovered/Not Resolved]
  - Psoriasis [Not Recovered/Not Resolved]
  - Weight decreased [Unknown]
  - Tooth extraction [Unknown]
  - Urticaria [Unknown]
  - Oral fungal infection [Not Recovered/Not Resolved]
  - Vomiting [Unknown]
  - Dermatitis contact [Unknown]
  - Mobility decreased [Unknown]
  - Tongue discomfort [Unknown]
  - Asthma [Unknown]
  - Oral discomfort [Unknown]
  - Hypersensitivity [Unknown]
  - Large intestinal ulcer [Unknown]
  - Saliva altered [Unknown]
  - Haematochezia [Unknown]
  - Hyperhidrosis [Unknown]
  - Weight decreased [Not Recovered/Not Resolved]
  - Scar [Not Recovered/Not Resolved]
  - Skin ulcer [Not Recovered/Not Resolved]
  - Cough [Unknown]
  - Product use complaint [Unknown]
  - Skin haemorrhage [Not Recovered/Not Resolved]

NARRATIVE: CASE EVENT DATE: 20210101
